FAERS Safety Report 6151740-8 (Version None)
Quarter: 2009Q2

REPORT INFORMATION
  Report Type: 
  Country: None (occurrence: None)
  Receive Date: 20090410
  Receipt Date: 20090403
  Transmission Date: 20091009
  Serious: Yes (Death, Hospitalization, Other)
  Sender: FDA-Public Use
  Company Number: A0777841A

PATIENT
  Sex: Male

DRUGS (3)
  1. SERETIDE [Suspect]
     Indication: CHRONIC OBSTRUCTIVE PULMONARY DISEASE
     Dates: start: 20080101, end: 20090328
  2. PREDSIM [Concomitant]
  3. BAMBEC [Concomitant]
     Dates: end: 20090326

REACTIONS (2)
  - DYSPNOEA [None]
  - SOMNOLENCE [None]
